FAERS Safety Report 11174833 (Version 1)
Quarter: 2015Q2

REPORT INFORMATION
  Report Type: Spontaneous
  Country: US (occurrence: None)
  Receive Date: 20150608
  Receipt Date: 20150608
  Transmission Date: 20150821
  Serious: Yes (Hospitalization)
  Sender: FDA-Public Use
  Company Number: None

PATIENT
  Age: 78 Year
  Sex: Female
  Weight: 71.22 kg

DRUGS (18)
  1. DIGOXIN. [Concomitant]
     Active Substance: DIGOXIN
  2. COUMADIN [Concomitant]
     Active Substance: WARFARIN SODIUM
  3. PLAVIX [Concomitant]
     Active Substance: CLOPIDOGREL BISULFATE
  4. PLAVIX [Concomitant]
     Active Substance: CLOPIDOGREL BISULFATE
  5. TYLENOL [Concomitant]
     Active Substance: ACETAMINOPHEN
  6. ATENOLOL. [Concomitant]
     Active Substance: ATENOLOL
  7. FLOREMIDE [Concomitant]
  8. ATORVASTATIN [Suspect]
     Active Substance: ATORVASTATIN
     Indication: BLOOD CHOLESTEROL
     Dosage: AT BEDTIME, BY MOUTH
     Dates: start: 20141218, end: 20150209
  9. ATORVASTATIN [Suspect]
     Active Substance: ATORVASTATIN
     Indication: BLOOD TRIGLYCERIDES
     Dosage: AT BEDTIME, BY MOUTH
     Dates: start: 20141218, end: 20150209
  10. AMLODIPINE [Concomitant]
     Active Substance: AMLODIPINE BESYLATE
  11. GLIPIZIDE. [Concomitant]
     Active Substance: GLIPIZIDE
  12. XARELTO [Concomitant]
     Active Substance: RIVAROXABAN
  13. METFORMIN [Concomitant]
     Active Substance: METFORMIN HYDROCHLORIDE
  14. PREDNISONE. [Concomitant]
     Active Substance: PREDNISONE
  15. PODAXA [Concomitant]
  16. PLAVIX [Concomitant]
     Active Substance: CLOPIDOGREL BISULFATE
  17. OMEPRAZOLE. [Concomitant]
     Active Substance: OMEPRAZOLE
  18. LIPITOR [Concomitant]
     Active Substance: ATORVASTATIN CALCIUM

REACTIONS (7)
  - Polydipsia [None]
  - Decreased appetite [None]
  - Diabetes mellitus [None]
  - Intestinal haemorrhage [None]
  - Tremor [None]
  - Skin discolouration [None]
  - Rectal haemorrhage [None]

NARRATIVE: CASE EVENT DATE: 20150210
